FAERS Safety Report 18932487 (Version 1)
Quarter: 2021Q1

REPORT INFORMATION
  Report Type: Spontaneous
  Country: IT (occurrence: IT)
  Receive Date: 20210223
  Receipt Date: 20210223
  Transmission Date: 20210420
  Serious: Yes (Hospitalization, Other)
  Sender: FDA-Public Use
  Company Number: IT-AUROBINDO-AUR-APL-2021-007417

PATIENT
  Age: 57 Year
  Sex: Male
  Weight: 78 kg

DRUGS (2)
  1. CARBOPLATIN CONCENTRATE FOR SOLUTION FOR INFUSION [Suspect]
     Active Substance: CARBOPLATIN
     Indication: LUNG NEOPLASM MALIGNANT
     Dosage: 420 MILLIGRAM 1 CYCLE
     Route: 042
     Dates: start: 20210129, end: 20210129
  2. ALIMTA [Suspect]
     Active Substance: PEMETREXED DISODIUM
     Indication: LUNG NEOPLASM MALIGNANT
     Dosage: 500 MILLIGRAM/SQ. METER 1 CYCLE
     Route: 042
     Dates: start: 20201210, end: 20210129

REACTIONS (4)
  - Mucosal inflammation [Unknown]
  - Anaemia [Unknown]
  - Neutropenia [Unknown]
  - Hypercreatininaemia [Unknown]

NARRATIVE: CASE EVENT DATE: 20210207
